FAERS Safety Report 10021870 (Version 1)
Quarter: 2014Q1

REPORT INFORMATION
  Report Type: Report from Study
  Country: US (occurrence: US)
  Receive Date: 20140319
  Receipt Date: 20140319
  Transmission Date: 20141002
  Serious: Yes (Hospitalization, Other)
  Sender: FDA-Public Use
  Company Number: US-BRISTOL-MYERS SQUIBB COMPANY-20417853

PATIENT
  Sex: Male

DRUGS (16)
  1. ARIPIPRAZOLE [Suspect]
     Dosage: LAST DOSE ON 06 FEB2014
     Dates: start: 20131210, end: 20140206
  2. FLUNISOLIDE [Concomitant]
  3. ALBUTEROL [Concomitant]
  4. BUDESONIDE [Concomitant]
  5. DOCUSATE [Concomitant]
  6. MULTIVITAMIN [Concomitant]
  7. TRAMADOL [Concomitant]
  8. LISINOPRIL [Concomitant]
  9. INSULIN ASPART [Concomitant]
  10. LORATADINE [Concomitant]
  11. ATORVASTATIN CALCIUM [Concomitant]
  12. GUAIFENESIN [Concomitant]
  13. METFORMIN [Concomitant]
  14. CAPSAICIN [Concomitant]
  15. ASPIRIN [Concomitant]
  16. INSULIN GLARGINE [Concomitant]

REACTIONS (2)
  - Back pain [Recovered/Resolved]
  - Chronic obstructive pulmonary disease [Unknown]
